FAERS Safety Report 18655611 (Version 4)
Quarter: 2025Q3

REPORT INFORMATION
  Report Type: Spontaneous
  Country: US (occurrence: US)
  Receive Date: 20201223
  Receipt Date: 20250709
  Transmission Date: 20251020
  Serious: No
  Sender: PFIZER
  Company Number: US-PFIZER INC-2020506667

PATIENT
  Age: 58 Year
  Sex: Female

DRUGS (3)
  1. IBRANCE [Suspect]
     Active Substance: PALBOCICLIB
     Indication: Neoplasm malignant
  2. IBRANCE [Suspect]
     Active Substance: PALBOCICLIB
     Dates: start: 20200615
  3. IBRANCE [Suspect]
     Active Substance: PALBOCICLIB
     Dates: start: 20200801

REACTIONS (4)
  - Fatigue [Unknown]
  - Muscle spasms [Unknown]
  - Product dose omission issue [Unknown]
  - Product dispensing error [Unknown]
